FAERS Safety Report 4412709-4 (Version None)
Quarter: 2004Q2

REPORT INFORMATION
  Report Type: 
  Country: None (occurrence: None)
  Receive Date: 20040630
  Receipt Date: 20040519
  Transmission Date: 20050107
  Serious: No
  Sender: FDA-Public Use
  Company Number: 04P-163-0261315-00

PATIENT
  Sex: Female

DRUGS (12)
  1. HUMIRA [Suspect]
     Indication: RHEUMATOID ARTHRITIS
     Dosage: 40 MG, 1 IN 2 WK, SUBCUTANEOUS
     Route: 058
     Dates: start: 20040301
  2. FOLIC ACID [Concomitant]
  3. HYDROXYCHLOROQUINE PHOSPHATE [Concomitant]
  4. METHOTREXATE [Concomitant]
  5. BUCINDOLOL HYDROCHLORIDE [Concomitant]
  6. CONJUGATED ESTROGEN [Concomitant]
  7. SERTRALINE HYDROCHLORIDE [Concomitant]
  8. ZOLPIDEM TARTRATE [Concomitant]
  9. CARISOPRODOL [Concomitant]
  10. OXYCOCET [Concomitant]
  11. SERETIDE MITE [Concomitant]
  12. ALBUTEROL SULFATE [Concomitant]

REACTIONS (1)
  - INJECTION SITE HAEMORRHAGE [None]
